FAERS Safety Report 8531663-7 (Version None)
Quarter: 2012Q3

REPORT INFORMATION
  Report Type: 
  Country: None (occurrence: None)
  Receive Date: 20120711
  Receipt Date: 20120629
  Transmission Date: 20120928
  Serious: Yes (Other)
  Sender: FDA-Public Use
  Company Number: JP-2012-15713

PATIENT
  Age: 56 Year
  Sex: Male
  Weight: 56 kg

DRUGS (8)
  1. EPLERENONE [Concomitant]
  2. SAMSCA [Suspect]
     Indication: FLUID RETENTION
     Dosage: 3.275 MG MILLIGRAM(S), QAM, ORAL
     Route: 048
     Dates: start: 20120615, end: 20120627
  3. LASIX (FUROSEMLDE) [Concomitant]
  4. ANCARON (AMIODARONE HYDROCHLORIDE) TABLET [Concomitant]
  5. ASPIRIN [Suspect]
     Indication: PROPHYLAXIS
     Dosage: 100 MG MILLIGRAM(S), DAILY DOSE, ORAL
     Route: 048
  6. ... [Concomitant]
     Route: 048
  7. CARVEDILOL [Concomitant]
  8. TANATRIL (IMIDAPRIL HYDROCHLORIDE) TABLET [Concomitant]

REACTIONS (2)
  - CEREBRAL HAEMORRHAGE [None]
  - BLOOD UREA INCREASED [None]
